FAERS Safety Report 6537983-X (Version None)
Quarter: 2010Q1

REPORT INFORMATION
  Report Type: 
  Country: None (occurrence: None)
  Receive Date: 20100111
  Receipt Date: 20100104
  Transmission Date: 20100710
  Serious: Yes (Hospitalization, Other)
  Sender: FDA-Public Use
  Company Number: CL-71-2010

PATIENT
  Age: 56 Year
  Sex: Female

DRUGS (2)
  1. ONDANSETRON [Suspect]
     Indication: PROPHYLAXIS OF NAUSEA AND VOMITING
     Dosage: 8 MG BD; ONE DAY
  2. METOCLOPRAMIDE [Suspect]
     Indication: PROPHYLAXIS OF NAUSEA AND VOMITING
     Dosage: 10 MG TDS, ONE DAY

REACTIONS (4)
  - ANXIETY [None]
  - DYSTONIA [None]
  - MUSCLE TWITCHING [None]
  - NAUSEA [None]
